FAERS Safety Report 6709467-7 (Version None)
Quarter: 2010Q2

REPORT INFORMATION
  Report Type: 
  Country: None (occurrence: None)
  Receive Date: 20100503
  Receipt Date: 20100503
  Transmission Date: 20101027
  Serious: Yes (Hospitalization)
  Sender: FDA-Public Use
  Company Number: None

PATIENT
  Age: 25 Year
  Sex: Female
  Weight: 72.5755 kg

DRUGS (2)
  1. PAROXETINE HCL [Suspect]
     Indication: DEPRESSION
     Dosage: ONE TAB Q DAY PO
     Route: 048
     Dates: start: 20100429, end: 20100501
  2. PAROXETINE HCL [Suspect]
     Indication: MIGRAINE
     Dosage: ONE TAB Q DAY PO
     Route: 048
     Dates: start: 20100429, end: 20100501

REACTIONS (6)
  - CLONUS [None]
  - GRAND MAL CONVULSION [None]
  - HYPERREFLEXIA [None]
  - POSTICTAL STATE [None]
  - SEROTONIN SYNDROME [None]
  - SINUS TACHYCARDIA [None]
